FAERS Safety Report 6505393-7 (Version None)
Quarter: 2009Q4

REPORT INFORMATION
  Report Type: 
  Country: None (occurrence: None)
  Receive Date: 20091217
  Receipt Date: 20091217
  Transmission Date: 20100525
  Serious: Yes (Hospitalization, Other)
  Sender: FDA-Public Use
  Company Number: None

PATIENT
  Age: 45 Year
  Sex: Female
  Weight: 86.1834 kg

DRUGS (3)
  1. LUPRON DEPOT-3 [Suspect]
     Indication: ENDOMETRIOSIS
     Dosage: 1 INJECTION 1 PER MONTH IM
     Route: 030
     Dates: start: 20090717, end: 20091105
  2. LUPRON DEPOT-3 [Suspect]
     Indication: OVARIAN CYST
     Dosage: 1 INJECTION 1 PER MONTH IM
     Route: 030
     Dates: start: 20090717, end: 20091105
  3. LUPRON DEPOT-3 [Suspect]
     Indication: UTERINE LEIOMYOMA
     Dosage: 1 INJECTION 1 PER MONTH IM
     Route: 030
     Dates: start: 20090717, end: 20091105

REACTIONS (8)
  - ANXIETY [None]
  - CHEST PAIN [None]
  - DECREASED ACTIVITY [None]
  - DEPRESSION [None]
  - DIZZINESS [None]
  - DYSPNOEA [None]
  - FATIGUE [None]
  - MIGRAINE [None]
